FAERS Safety Report 9387821 (Version 2)
Quarter: 2013Q3

REPORT INFORMATION
  Report Type: Spontaneous
  Country: JP (occurrence: JP)
  Receive Date: 20130708
  Receipt Date: 20130723
  Transmission Date: 20140515
  Serious: Yes (Other)
  Sender: FDA-Public Use
  Company Number: JP-BAXTER-2013BAX021121

PATIENT
  Age: 57 Year
  Sex: Male
  Weight: 69 kg

DRUGS (24)
  1. FEIBA FOR INJECTION 1000 [Suspect]
     Indication: HAEMOSTASIS
     Route: 042
     Dates: start: 20130517, end: 20130520
  2. FEIBA FOR INJECTION 1000 [Suspect]
     Indication: FACTOR VIII DEFICIENCY
  3. NOVOSEVEN HI [Suspect]
     Indication: HAEMOSTASIS
     Route: 042
     Dates: start: 20130514, end: 20130517
  4. AMARYL [Concomitant]
     Indication: DIABETES MELLITUS
     Route: 048
     Dates: start: 20130515, end: 20130516
  5. AMARYL [Concomitant]
     Route: 048
     Dates: start: 20130518, end: 20130521
  6. NU-LOTAN [Concomitant]
     Indication: HYPERTENSION
     Route: 048
     Dates: start: 20130515, end: 20130521
  7. TAKEPRON [Concomitant]
     Indication: GASTRIC ULCER
     Route: 048
     Dates: start: 20130514, end: 20130516
  8. TAKEPRON [Concomitant]
     Route: 048
     Dates: start: 20130518, end: 20130520
  9. MAGMITT [Concomitant]
     Indication: CONSTIPATION
     Route: 048
     Dates: start: 20130520, end: 20130521
  10. AMLODIN [Concomitant]
     Indication: HYPERTENSION
     Route: 048
     Dates: start: 20130514, end: 20130516
  11. AMLODIN [Concomitant]
     Route: 048
     Dates: start: 20130518, end: 20130520
  12. CALONAL [Concomitant]
     Indication: ANALGESIC THERAPY
     Route: 048
     Dates: start: 20130519, end: 20130519
  13. SAWACILLIN [Concomitant]
     Indication: TOOTH EXTRACTION
     Route: 048
     Dates: start: 20130514, end: 20130521
  14. FERROMIA [Concomitant]
     Indication: IRON DEFICIENCY ANAEMIA
     Route: 048
     Dates: start: 20130518, end: 20130521
  15. SOLDEM 1 [Concomitant]
     Indication: FLUID REPLACEMENT
     Route: 041
     Dates: start: 20130519, end: 20130519
  16. ISOTONIC SODIUM CHLORIDE SOLUTION [Concomitant]
     Indication: FLUID REPLACEMENT
     Route: 041
     Dates: start: 20130514, end: 20130514
  17. ISOTONIC SODIUM CHLORIDE SOLUTION [Concomitant]
     Route: 041
     Dates: start: 20130515, end: 20130516
  18. ISOTONIC SODIUM CHLORIDE SOLUTION [Concomitant]
     Route: 041
     Dates: start: 20130517, end: 20130517
  19. ISOTONIC SODIUM CHLORIDE SOLUTION [Concomitant]
     Route: 041
     Dates: start: 20130518, end: 20130518
  20. ISOTONIC SODIUM CHLORIDE SOLUTION [Concomitant]
     Route: 041
     Dates: start: 20130519, end: 20130519
  21. ISOTONIC SODIUM CHLORIDE SOLUTION [Concomitant]
     Route: 041
     Dates: start: 20130520, end: 20130520
  22. ADONA [Concomitant]
     Indication: HAEMATURIA
     Route: 041
     Dates: start: 20130517, end: 20130517
  23. ADONA [Concomitant]
     Route: 041
     Dates: start: 20130519, end: 20130519
  24. HUMAN RED BLOOD CELLS [Concomitant]
     Indication: PRODUCT USED FOR UNKNOWN INDICATION
     Dosage: 4 UNITS
     Route: 041
     Dates: start: 20130517, end: 20130518

REACTIONS (1)
  - Hydronephrosis [Recovering/Resolving]
